FAERS Safety Report 15267289 (Version 1)
Quarter: 2018Q3

REPORT INFORMATION
  Report Type: Spontaneous
  Country: US (occurrence: US)
  Receive Date: 20180724
  Receipt Date: 20180724
  Transmission Date: 20181010
  Serious: Yes (Hospitalization)
  Sender: FDA-Public Use
  Company Number: None

PATIENT
  Age: 62 Year
  Sex: Male

DRUGS (1)
  1. CHLORDIAZEPOXIDE. [Suspect]
     Active Substance: CHLORDIAZEPOXIDE
     Indication: ALCOHOL WITHDRAWAL SYNDROME
     Route: 048
     Dates: start: 20180226, end: 20180522

REACTIONS (2)
  - Lethargy [None]
  - Mental status changes [None]

NARRATIVE: CASE EVENT DATE: 20180606
